FAERS Safety Report 19462608 (Version 1)
Quarter: 2021Q2

REPORT INFORMATION
  Report Type: Spontaneous
  Country: GB (occurrence: GB)
  Receive Date: 20210625
  Receipt Date: 20210625
  Transmission Date: 20210717
  Serious: Yes (Disabling)
  Sender: FDA-Public Use
  Company Number: GB-ALLERGAN-2123742US

PATIENT
  Sex: Female
  Weight: 64 kg

DRUGS (2)
  1. KALMS NIGHT [Concomitant]
     Indication: PRODUCT USED FOR UNKNOWN INDICATION
  2. CITALOPRAM HYDROBROMIDE ? BP [Suspect]
     Active Substance: CITALOPRAM HYDROBROMIDE
     Indication: ANXIETY
     Dosage: 20 MG
     Route: 048
     Dates: start: 20210226

REACTIONS (2)
  - Off label use [Unknown]
  - Anxiety [Recovered/Resolved with Sequelae]

NARRATIVE: CASE EVENT DATE: 20210228
